FAERS Safety Report 14224581 (Version 2)
Quarter: 2017Q4

REPORT INFORMATION
  Report Type: Spontaneous
  Country: US (occurrence: US)
  Receive Date: 20171127
  Receipt Date: 20171205
  Transmission Date: 20180321
  Serious: No
  Sender: FDA-Public Use
  Company Number: US-AMGEN-USASP2017176542

PATIENT
  Age: 0 Year
  Sex: Female
  Weight: 3.15 kg

DRUGS (2)
  1. FLUOXETINE [Concomitant]
     Active Substance: FLUOXETINE HYDROCHLORIDE
     Indication: EXPOSURE DURING PREGNANCY
     Dosage: 10 MG, QD
     Route: 064
     Dates: end: 20160701
  2. ENBREL [Suspect]
     Active Substance: ETANERCEPT
     Indication: EXPOSURE DURING PREGNANCY
     Dosage: 50 MG, QWK
     Route: 064
     Dates: start: 2016, end: 20160701

REACTIONS (3)
  - Body temperature increased [Recovered/Resolved]
  - Jaundice neonatal [Recovered/Resolved]
  - Heart rate increased [Recovered/Resolved]

NARRATIVE: CASE EVENT DATE: 201703
